FAERS Safety Report 9543175 (Version 1)
Quarter: 2013Q3

REPORT INFORMATION
  Report Type: Spontaneous
  Country: US (occurrence: US)
  Receive Date: 20130923
  Receipt Date: 20130923
  Transmission Date: 20140515
  Serious: No
  Sender: FDA-Public Use
  Company Number: US-PURDUE-USA-2012-0092676

PATIENT
  Age: 50 Year
  Sex: Male

DRUGS (2)
  1. DILAUDID TABLET [Suspect]
     Indication: PAIN
     Dosage: 4 MG, UNK
     Route: 048
     Dates: start: 20091223
  2. ROXICODONE [Concomitant]
     Indication: PAIN
     Dosage: 30 MG, UNK
     Route: 048

REACTIONS (1)
  - Drug ineffective [Unknown]
